FAERS Safety Report 24812200 (Version 1)
Quarter: 2025Q1

REPORT INFORMATION
  Report Type: Spontaneous
  Country: US (occurrence: None)
  Receive Date: 20250106
  Receipt Date: 20250106
  Transmission Date: 20250408
  Serious: Yes (Hospitalization)
  Sender: FDA-CTU
  Company Number: None

PATIENT
  Age: 43 Year
  Sex: Female
  Weight: 108.9 kg

DRUGS (1)
  1. YESCARTA [Suspect]
     Active Substance: AXICABTAGENE CILOLEUCEL
     Indication: Diffuse large B-cell lymphoma
     Route: 042
     Dates: start: 20241224, end: 20241224

REACTIONS (6)
  - Dermatitis [None]
  - Epidermal necrosis [None]
  - Dermatitis exfoliative generalised [None]
  - Blister [None]
  - Pain [None]
  - Systemic lupus erythematosus [None]

NARRATIVE: CASE EVENT DATE: 20241229
